FAERS Safety Report 18319976 (Version 1)
Quarter: 2020Q3

REPORT INFORMATION
  Report Type: Spontaneous
  Country: IT (occurrence: IT)
  Receive Date: 20200929
  Receipt Date: 20200929
  Transmission Date: 20201103
  Serious: Yes (Other)
  Sender: FDA-Public Use
  Company Number: IT-AMGEN-ITANI2020154394

PATIENT
  Age: 66 Year
  Sex: Female

DRUGS (3)
  1. AMGEVITA [Suspect]
     Active Substance: ADALIMUMAB
     Indication: COLITIS ULCERATIVE
     Dosage: 40 MILLIGRAM, QWK,AMGEVITA 20 MG SOLUTION FOR INJECTION IN PRE?FILLED SYRINGE
     Route: 058
     Dates: start: 20190715, end: 20200914
  2. MESAVANCOL [Concomitant]
     Active Substance: MESALAMINE
     Indication: COLITIS ULCERATIVE
     Dosage: 4800 MILLIGRAM
     Route: 048
  3. PENTASA [Concomitant]
     Active Substance: MESALAMINE
     Indication: COLITIS ULCERATIVE
     Route: 054

REACTIONS (2)
  - Therapeutic response shortened [Not Recovered/Not Resolved]
  - Colitis ulcerative [Not Recovered/Not Resolved]

NARRATIVE: CASE EVENT DATE: 20200916
